FAERS Safety Report 6207995-4 (Version None)
Quarter: 2009Q2

REPORT INFORMATION
  Report Type: 
  Country: None (occurrence: None)
  Receive Date: 20090529
  Receipt Date: 20090303
  Transmission Date: 20091009
  Serious: No
  Sender: FDA-Public Use
  Company Number: A0771341A

PATIENT
  Age: 82 Year
  Sex: Female

DRUGS (3)
  1. VENTOLIN [Suspect]
     Dosage: 2PUFF THREE TIMES PER DAY
     Route: 055
     Dates: start: 20080101
  2. ADVAIR HFA [Suspect]
     Indication: ASTHMA
     Dosage: 1PUFF TWICE PER DAY
     Route: 055
     Dates: start: 20080501, end: 20080901
  3. ZOCOR [Concomitant]

REACTIONS (4)
  - DRUG ADMINISTRATION ERROR [None]
  - DRUG INEFFECTIVE [None]
  - DYSPNOEA [None]
  - VISION BLURRED [None]
